APPROVED DRUG PRODUCT: ENALAPRIL MALEATE
Active Ingredient: ENALAPRIL MALEATE
Strength: 10MG
Dosage Form/Route: TABLET;ORAL
Application: A218531 | Product #003 | TE Code: AB
Applicant: UNIQUE PHARMACEUTICAL LABORATORIES
Approved: Sep 19, 2024 | RLD: No | RS: No | Type: RX